FAERS Safety Report 6185566-6 (Version None)
Quarter: 2009Q2

REPORT INFORMATION
  Report Type: 
  Country: None (occurrence: None)
  Receive Date: 20090507
  Receipt Date: 20090504
  Transmission Date: 20091009
  Serious: Yes (Hospitalization)
  Sender: FDA-Public Use
  Company Number: 2009SP009421

PATIENT
  Age: 66 Year
  Sex: Male
  Weight: 185 kg

DRUGS (12)
  1. TEMODAR [Suspect]
     Indication: GLIOBLASTOMA
     Dosage: 410 MG; PO
     Route: 048
     Dates: start: 20081022
  2. TOPOTECAN (2 MG/M2) [Suspect]
     Indication: GLIOBLASTOMA
     Dosage: 4 MG; PO
     Route: 048
     Dates: start: 20081023
  3. CYMBALTA [Concomitant]
  4. ATENOLOL [Concomitant]
  5. CIPRODEX EAR DROPS [Concomitant]
  6. DEXAMETHASONE [Concomitant]
  7. TEGRETOL [Concomitant]
  8. ADVAIR HFA [Concomitant]
  9. ALBUTEROL [Concomitant]
  10. ZOFRAN [Concomitant]
  11. NASONEX [Concomitant]
  12. HYDROCODONE BITARTRATE [Concomitant]

REACTIONS (10)
  - CONFUSIONAL STATE [None]
  - DEHYDRATION [None]
  - DYSPHAGIA [None]
  - HYPOALBUMINAEMIA [None]
  - HYPOCALCAEMIA [None]
  - HYPOKALAEMIA [None]
  - HYPOPHOSPHATAEMIA [None]
  - HYPOTENSION [None]
  - PANCYTOPENIA [None]
  - PNEUMONIA ASPIRATION [None]
